FAERS Safety Report 6542100-6 (Version None)
Quarter: 2010Q1

REPORT INFORMATION
  Report Type: 
  Country: None (occurrence: None)
  Receive Date: 20100119
  Receipt Date: 20100108
  Transmission Date: 20100710
  Serious: Yes (Hospitalization)
  Sender: FDA-Public Use
  Company Number: US-B.I. PHARMACEUTICALS,INC./RIDGEFIELD-2008-BP-16483BP

PATIENT
  Sex: Female

DRUGS (9)
  1. SPIRIVA [Suspect]
     Indication: CHRONIC OBSTRUCTIVE PULMONARY DISEASE
     Dosage: 18 MCG
     Route: 055
     Dates: start: 20080801
  2. DIOVAN [Concomitant]
     Indication: HYPERTENSION
     Dosage: 320 MG
     Dates: start: 20030101
  3. TEKTURNA [Concomitant]
     Indication: HYPERTENSION
     Dosage: 150 MG
     Dates: start: 20030101
  4. COREG [Concomitant]
     Indication: CARDIAC DISORDER
  5. PRILOSEC [Concomitant]
     Indication: GASTROOESOPHAGEAL REFLUX DISEASE
     Dosage: 40 MG
  6. FUROSEMIDE [Concomitant]
     Indication: CARDIAC DISORDER
  7. FUROSEMIDE [Concomitant]
     Indication: BLOOD PRESSURE
  8. STOOL SOFTENER [Concomitant]
  9. FISH OIL [Concomitant]

REACTIONS (16)
  - ASTHMA [None]
  - CHEST DISCOMFORT [None]
  - DRY MOUTH [None]
  - EYE PRURITUS [None]
  - JOINT LOCK [None]
  - MYALGIA [None]
  - MYOCARDIAL INFARCTION [None]
  - NERVOUSNESS [None]
  - NODULE ON EXTREMITY [None]
  - OROPHARYNGEAL PAIN [None]
  - OSTEOARTHRITIS [None]
  - PAIN [None]
  - PAIN IN EXTREMITY [None]
  - RESPIRATORY TRACT CONGESTION [None]
  - SLEEP DISORDER [None]
  - URINARY TRACT INFECTION [None]
